FAERS Safety Report 25849987 (Version 1)
Quarter: 2025Q3

REPORT INFORMATION
  Report Type: Spontaneous
  Country: US (occurrence: US)
  Receive Date: 20250926
  Receipt Date: 20250926
  Transmission Date: 20251021
  Serious: No
  Sender: STRIDES
  Company Number: US-STRIDES ARCOLAB LIMITED-2024SP012909

PATIENT
  Age: 80 Year
  Sex: Male

DRUGS (1)
  1. BUSPIRONE HYDROCHLORIDE [Suspect]
     Active Substance: BUSPIRONE HYDROCHLORIDE
     Indication: Central sleep apnoea syndrome
     Route: 065

REACTIONS (1)
  - Off label use [Unknown]
